FAERS Safety Report 9563020 (Version 2)
Quarter: 2013Q4

REPORT INFORMATION
  Report Type: Spontaneous
  Country: JP (occurrence: JP)
  Receive Date: 20130927
  Receipt Date: 20131021
  Transmission Date: 20140711
  Serious: Yes (Other)
  Sender: FDA-Public Use
  Company Number: JP-B.I. PHARMACEUTICALS,INC./RIDGEFIELD-2013-BI-30254YA

PATIENT
  Age: 72 Year
  Sex: Male

DRUGS (4)
  1. TAMSULOSIN [Suspect]
     Dosage: 0.2 MG
     Route: 048
     Dates: end: 20130910
  2. TAMSULOSIN [Suspect]
     Dosage: 0.1 MG
     Route: 048
     Dates: start: 20130911, end: 20131002
  3. TAMSULOSIN [Suspect]
     Dosage: 0.2 MG
     Route: 048
     Dates: start: 20131003
  4. PAXIL [Suspect]
     Dosage: 5 MG
     Route: 048
     Dates: end: 20130822

REACTIONS (1)
  - Persecutory delusion [Unknown]
